FAERS Safety Report 8035667-2 (Version None)
Quarter: 2012Q1

REPORT INFORMATION
  Report Type: 
  Country: None (occurrence: None)
  Receive Date: 20120111
  Receipt Date: 20120106
  Transmission Date: 20120608
  Serious: Yes (Disabling)
  Sender: FDA-Public Use
  Company Number: US-B.I. PHARMACEUTICALS,INC./RIDGEFIELD-2011-BP-26559BP

PATIENT
  Sex: Female
  Weight: 62.14 kg

DRUGS (5)
  1. CARDIZEM [Concomitant]
     Indication: HYPERTENSION
  2. COUMADIN [Concomitant]
     Dates: start: 20111111
  3. PRADAXA [Suspect]
     Indication: ATRIAL FIBRILLATION
     Dosage: 150 MG
     Dates: start: 20110929, end: 20111110
  4. LIPITOR [Concomitant]
     Indication: HYPERLIPIDAEMIA
     Dosage: 20 MG
  5. CARDIZEM [Concomitant]
     Indication: ATRIAL FIBRILLATION
     Dosage: 240 MG
     Dates: start: 20110929

REACTIONS (3)
  - VOMITING [None]
  - NAUSEA [None]
  - BASAL GANGLIA INFARCTION [None]
